FAERS Safety Report 4467901-X (Version None)
Quarter: 2004Q4

REPORT INFORMATION
  Report Type: 
  Country: None (occurrence: None)
  Receive Date: 20041004
  Receipt Date: 20040923
  Transmission Date: 20050328
  Serious: Yes (Hospitalization, Other)
  Sender: FDA-Public Use
  Company Number: 2004-08-1817

PATIENT
  Age: 68 Year
  Sex: Male
  Weight: 117.9352 kg

DRUGS (16)
  1. NITRO-DUR [Suspect]
     Indication: ANGINA PECTORIS
     Dosage: TRANSDERMAL
     Route: 062
     Dates: start: 20020101
  2. VITAMIN E [Concomitant]
  3. VITAMIN C [Concomitant]
  4. POTASSIUM SUPPLEMENT [Concomitant]
  5. TEGRETOL [Concomitant]
  6. ALPRAZOLAM [Concomitant]
  7. METOPROLOL [Concomitant]
  8. NORVASC [Concomitant]
  9. ZESTORETIC [Concomitant]
  10. LOSEC [Concomitant]
  11. GLYBURIDE [Concomitant]
  12. METFORMIN HCL [Concomitant]
  13. LIPITOR [Concomitant]
  14. ASPIRIN [Concomitant]
  15. WARFARIN SODIUM [Concomitant]
  16. PROSCAR [Concomitant]

REACTIONS (10)
  - APPLICATION SITE ERYTHEMA [None]
  - APPLICATION SITE PRURITUS [None]
  - CHEST PAIN [None]
  - DIABETES MELLITUS NON-INSULIN-DEPENDENT [None]
  - DYSPNOEA [None]
  - HYPERHIDROSIS [None]
  - POST PROCEDURAL COMPLICATION [None]
  - PULMONARY THROMBOSIS [None]
  - THROMBOSIS [None]
  - TRIPLE VESSEL BYPASS GRAFT [None]
